FAERS Safety Report 14227681 (Version 2)
Quarter: 2017Q4

REPORT INFORMATION
  Report Type: Spontaneous
  Country: FR (occurrence: FR)
  Receive Date: 20171127
  Receipt Date: 20171130
  Transmission Date: 20180321
  Serious: Yes (Death, Other)
  Sender: FDA-Public Use
  Company Number: FR-009507513-1711FRA008305

PATIENT
  Age: 74 Year
  Sex: Male

DRUGS (9)
  1. VIRAFERONPEG [Suspect]
     Active Substance: PEGINTERFERON ALFA-2B
     Indication: HEPATITIS C
     Dosage: UNK
     Dates: start: 20010702, end: 20020711
  2. ZYLORIC [Concomitant]
     Active Substance: ALLOPURINOL
     Indication: URATE NEPHROPATHY
     Dosage: 100 MG, ONCE A DAY (QD)
     Dates: start: 2005, end: 20141125
  3. ARANESP [Concomitant]
     Active Substance: DARBEPOETIN ALFA
     Indication: BLOOD ERYTHROPOIETIN
     Dosage: 130 (UNIT NOT PROVIDED)/ WEEK
     Dates: start: 2002, end: 20141125
  4. LEVOTHYROXINE SODIUM. [Concomitant]
     Active Substance: LEVOTHYROXINE SODIUM
     Indication: HYPOTHYROIDISM
     Dosage: 100 MICROGRAM, ONCE A DAY (QD)
     Dates: start: 201408, end: 20141125
  5. CELLCEPT [Concomitant]
     Active Substance: MYCOPHENOLATE MOFETIL\MYCOPHENOLATE MOFETIL HYDROCHLORIDE
     Indication: TRANSPLANT REJECTION
     Dosage: 500 MICROGRAM, TWICE A DAY (BID)
     Dates: start: 201201, end: 20141125
  6. KARDEGIC [Concomitant]
     Active Substance: ASPIRIN DL-LYSINE
     Indication: ANTICOAGULANT THERAPY
     Dosage: 75 MG, ONCE A DAY (QD)
     Dates: start: 2002, end: 20141102
  7. NOCTAMIDE [Concomitant]
     Active Substance: LORMETAZEPAM
     Indication: INSOMNIA
     Dosage: 2 MG, ONCE A DAY (QD)
     Route: 048
     Dates: start: 2002, end: 20141125
  8. REBETOL [Suspect]
     Active Substance: RIBAVIRIN
     Indication: HEPATITIS C
     Dosage: UNK
     Route: 048
     Dates: start: 20010702, end: 20020711
  9. OGASTORO [Concomitant]
     Active Substance: LANSOPRAZOLE
     Indication: GASTROOESOPHAGEAL REFLUX DISEASE
     Dosage: 30 MG, ONCE A DAY (QD)
     Route: 048
     Dates: start: 20140205, end: 20141125

REACTIONS (2)
  - Weight decreased [Unknown]
  - Bone cancer [Fatal]

NARRATIVE: CASE EVENT DATE: 20141125
